FAERS Safety Report 6302956 (Version 4)
Quarter: 2017Q3

REPORT INFORMATION
  Report Type: Spontaneous
  Country: US (occurrence: US)
  Receive Date: 20061012
  Receipt Date: 20170922
  Transmission Date: 20171128
  Serious: Yes (Death, Hospitalization, Other)
  Sender: FDA-Public Use
  Company Number: US-PFIZER INC-2006122881

PATIENT
  Age: 85 Year
  Sex: Male
  Weight: 91 kg

DRUGS (4)
  1. CELEBREX [Suspect]
     Active Substance: CELECOXIB
     Indication: OSTEOARTHRITIS
     Dosage: 200 MG, 1X/DAY
     Dates: start: 20030121, end: 20050111
  2. VIOXX [Suspect]
     Active Substance: ROFECOXIB
     Indication: OSTEOARTHRITIS
     Dosage: 25 MG, 1X/DAY
     Dates: start: 20030401, end: 20041007
  3. PROSCAR [Concomitant]
     Active Substance: FINASTERIDE
     Indication: BENIGN PROSTATIC HYPERPLASIA
     Dosage: UNK
  4. CARDURA [Concomitant]
     Active Substance: DOXAZOSIN MESYLATE
     Indication: HYPERTENSION
     Dosage: UNK

REACTIONS (2)
  - Ischaemic stroke [Unknown]
  - Death [Fatal]

NARRATIVE: CASE EVENT DATE: 20031230
